FAERS Safety Report 16885795 (Version 3)
Quarter: 2019Q4

REPORT INFORMATION
  Report Type: Spontaneous
  Country: US (occurrence: US)
  Receive Date: 20191004
  Receipt Date: 20191223
  Transmission Date: 20200122
  Serious: Yes (Other)
  Sender: FDA-Public Use
  Company Number: US-ROCHE-2404430

PATIENT
  Sex: Female
  Weight: 95.34 kg

DRUGS (1)
  1. ACTEMRA [Suspect]
     Active Substance: TOCILIZUMAB
     Indication: RHEUMATOID ARTHRITIS
     Dosage: 162MG/0.9ML INJ
     Route: 058
     Dates: start: 20190319, end: 20190510

REACTIONS (5)
  - Fall [Unknown]
  - Rheumatoid arthritis [Unknown]
  - Drug ineffective [Unknown]
  - Foot fracture [Recovered/Resolved]
  - Hand fracture [Recovered/Resolved]
